FAERS Safety Report 9649545 (Version 3)
Quarter: 2014Q1

REPORT INFORMATION
  Report Type: Report from Study
  Country: FR (occurrence: FR)
  Receive Date: 20131028
  Receipt Date: 20140221
  Transmission Date: 20141002
  Serious: Yes (Other)
  Sender: FDA-Public Use
  Company Number: FR-SA-2013SA107835

PATIENT
  Age: 72 Year
  Sex: Female

DRUGS (2)
  1. CAMPATH [Suspect]
     Indication: B-CELL LYMPHOMA
     Route: 065
     Dates: start: 201305, end: 20130915
  2. CAMPATH [Suspect]
     Indication: B-CELL LYMPHOMA
     Route: 065
     Dates: start: 201305, end: 20130915

REACTIONS (1)
  - Disease progression [Unknown]
